FAERS Safety Report 5940351-2 (Version None)
Quarter: 2008Q4

REPORT INFORMATION
  Report Type: 
  Country: None (occurrence: None)
  Receive Date: 20081030
  Receipt Date: 20081023
  Transmission Date: 20090506
  Serious: Yes (Death, Hospitalization)
  Sender: FDA-Public Use
  Company Number: WAES 0510CHE00016

PATIENT
  Age: 69 Year
  Sex: Female

DRUGS (10)
  1. CAP VORINOSTAT [Suspect]
     Indication: MYCOSIS FUNGOIDES
     Dosage: 200 MG/DAILY
     Route: 048
     Dates: start: 20050921, end: 20051102
  2. TAB BEXAROTENE [Suspect]
     Indication: MYCOSIS FUNGOIDES
     Dosage: 225 MG/DAILY
     Route: 048
     Dates: start: 20050921, end: 20051102
  3. ACETAMINOPHEN [Concomitant]
  4. CETIRIZINE HYDRCHLORIDE [Concomitant]
  5. GLIMEPIRIDE [Concomitant]
  6. IBUPROFEN TABLETS [Concomitant]
  7. OXAZEPAM [Concomitant]
  8. POVIDONE IODINE [Concomitant]
  9. SIMVASTATIN [Concomitant]
  10. TRAMADOL HC1 [Concomitant]

REACTIONS (8)
  - CANCER PAIN [None]
  - DISEASE PROGRESSION [None]
  - HEPATIC FAILURE [None]
  - MALIGNANT NEOPLASM PROGRESSION [None]
  - ORGAN FAILURE [None]
  - SOMNOLENCE [None]
  - SUPERINFECTION BACTERIAL [None]
  - T-CELL LYMPHOMA [None]
